FAERS Safety Report 6447593-0 (Version None)
Quarter: 2009Q4

REPORT INFORMATION
  Report Type: 
  Country: None (occurrence: None)
  Receive Date: 20091119
  Receipt Date: 20090116
  Transmission Date: 20100525
  Serious: Yes (Hospitalization)
  Sender: FDA-Public Use
  Company Number: US-AMGEN-KDL318065

PATIENT
  Sex: Male
  Weight: 112.1 kg

DRUGS (8)
  1. ENBREL [Suspect]
     Indication: PSORIASIS
     Route: 058
     Dates: start: 20081021, end: 20081231
  2. ENBREL [Suspect]
     Indication: PSORIATIC ARTHROPATHY
  3. METHOTREXATE [Concomitant]
     Route: 048
     Dates: start: 20040801
  4. AMLODIPINE [Concomitant]
     Route: 065
     Dates: start: 20081029
  5. LISINOPRIL [Concomitant]
     Route: 065
     Dates: start: 20080806
  6. NAPROXEN [Concomitant]
     Route: 065
     Dates: start: 20080806
  7. TRIAMCINOLONE [Concomitant]
     Route: 061
     Dates: start: 20081012
  8. UNSPECIFIED STEROIDS [Concomitant]
     Route: 061

REACTIONS (1)
  - SCROTAL ABSCESS [None]
